FAERS Safety Report 13148328 (Version 1)
Quarter: 2017Q1

REPORT INFORMATION
  Report Type: Spontaneous
  Country: FR (occurrence: FR)
  Receive Date: 20170125
  Receipt Date: 20170125
  Transmission Date: 20170428
  Serious: Yes (Other)
  Sender: FDA-Public Use
  Company Number: FR-ASTRAZENECA-2017SE07378

PATIENT
  Age: 68 Year
  Sex: Female

DRUGS (1)
  1. CRESTOR [Suspect]
     Active Substance: ROSUVASTATIN CALCIUM
     Route: 048

REACTIONS (13)
  - Hypoaesthesia [Unknown]
  - Blood pyruvic acid increased [Unknown]
  - Dysarthria [Unknown]
  - Foot deformity [Unknown]
  - Pain [Unknown]
  - Dysstasia [Unknown]
  - Decreased vibratory sense [Unknown]
  - Blood lactic acid increased [Unknown]
  - Hepatocellular injury [Unknown]
  - Cerebrovascular accident [Unknown]
  - Amyotrophy [Unknown]
  - Myositis [Unknown]
  - Nystagmus [Unknown]

NARRATIVE: CASE EVENT DATE: 2016
